FAERS Safety Report 6110476-X (Version None)
Quarter: 2009Q1

REPORT INFORMATION
  Report Type: 
  Country: None (occurrence: None)
  Receive Date: 20090310
  Receipt Date: 20090302
  Transmission Date: 20090719
  Serious: Yes (Hospitalization)
  Sender: FDA-Public Use
  Company Number: PHHY2008MX17920

PATIENT
  Sex: Male

DRUGS (2)
  1. STALEVO 100 [Suspect]
     Indication: PARKINSON'S DISEASE
     Dosage: 3 TABELETS PERDAY, 100/25/200MG
     Route: 048
     Dates: start: 20051201, end: 20080901
  2. STALEVO 100 [Suspect]
     Dosage: 2 TABLETS PER DAY, 50/12.5/200MG
     Route: 048
     Dates: start: 20080801, end: 20080901

REACTIONS (4)
  - BURNING SENSATION [None]
  - DYSURIA [None]
  - PAIN [None]
  - RENAL PAIN [None]
